FAERS Safety Report 4309253-1 (Version None)
Quarter: 2004Q1

REPORT INFORMATION
  Report Type: 
  Country: None (occurrence: None)
  Receive Date: 20040227
  Receipt Date: 20040217
  Transmission Date: 20041129
  Serious: Yes (Life-Threatening, Hospitalization, Other)
  Sender: FDA-Public Use
  Company Number: HQWYE040717FEB04

PATIENT
  Age: 83 Year
  Sex: Female

DRUGS (10)
  1. CONCOR PLUS (BISOPROLOL/HYDROCHLORTHIAZIDE, TABLET) [Suspect]
     Indication: HYPERTENSION
     Dosage: 0.5 MG 1 X PER 1 DAY
     Route: 048
     Dates: end: 20030822
  2. RAMIPRIL [Suspect]
     Indication: MYOCARDIAL ISCHAEMIA
     Dosage: 5 MG 1 X PER 1 DAY
     Route: 048
     Dates: start: 20010101
  3. GLUCOBAY [Suspect]
     Indication: DIABETES MELLITUS
     Dosage: 50 MG 3 X PER 1 DAY
     Route: 048
     Dates: end: 20030822
  4. GODAMED (ACETYLSALICYLIC ACID) [Concomitant]
  5. LAXOBERON (SODIUM PICOSULFATE) [Concomitant]
  6. NITRANGIN (GLYCERYL TRINITRATE) [Concomitant]
  7. SORTIS ^GOEDECKE^ ATORVASTATIN CALCIUM) [Concomitant]
  8. UNAI (TORASEMIDE) [Concomitant]
  9. ZOLOFT [Concomitant]
  10. BISACODYL (BIASCODYL) [Concomitant]

REACTIONS (4)
  - ASTHENIA [None]
  - COUGH [None]
  - DRUG INTERACTION [None]
  - HYPOGLYCAEMIA [None]
